FAERS Safety Report 7989649-7 (Version None)
Quarter: 2011Q4

REPORT INFORMATION
  Report Type: 
  Country: None (occurrence: None)
  Receive Date: 20111219
  Receipt Date: 20111212
  Transmission Date: 20120403
  Serious: No
  Sender: FDA-Public Use
  Company Number: US-B.I. PHARMACEUTICALS,INC./RIDGEFIELD-2011-BP-27917BP

PATIENT
  Sex: Male

DRUGS (8)
  1. METOPROLOL TARTRATE [Concomitant]
     Indication: HYPERTENSION
     Dosage: 50 MG
     Route: 048
  2. SPIRIVA [Suspect]
     Indication: CHRONIC OBSTRUCTIVE PULMONARY DISEASE
     Dosage: 18 MCG
     Route: 055
     Dates: start: 20111112, end: 20111211
  3. VERAPAMIL [Concomitant]
     Indication: HYPERTENSION
     Dosage: 360 MG
     Route: 048
  4. OXAZEPAM [Concomitant]
     Indication: ANXIETY
     Dosage: 15 MG
     Route: 048
  5. FINASTERIDE [Concomitant]
     Indication: BENIGN PROSTATIC HYPERPLASIA
     Dosage: 5 MG
     Route: 048
  6. DIOVAN HCT [Concomitant]
     Indication: HYPERTENSION
     Route: 048
     Dates: start: 20070101
  7. UROXITROL [Concomitant]
     Indication: BENIGN PROSTATIC HYPERPLASIA
     Dosage: 10 MG
     Route: 048
  8. PROAIR HFA [Concomitant]
     Indication: CHRONIC OBSTRUCTIVE PULMONARY DISEASE
     Route: 055

REACTIONS (4)
  - DYSPEPSIA [None]
  - FLATULENCE [None]
  - FAECAL INCONTINENCE [None]
  - DIARRHOEA [None]
